FAERS Safety Report 21531552 (Version 2)
Quarter: 2022Q4

REPORT INFORMATION
  Report Type: Report from Study
  Country: US (occurrence: US)
  Receive Date: 20221031
  Receipt Date: 20221126
  Transmission Date: 20230113
  Serious: Yes (Other)
  Sender: FDA-Public Use
  Company Number: US-ABBVIE-4180892

PATIENT
  Sex: Female
  Weight: 77.11 kg

DRUGS (10)
  1. HUMIRA [Suspect]
     Active Substance: ADALIMUMAB
     Indication: Uveitis
     Dosage: FORM STRENGTH 40 MG?CITRATE FREE
     Route: 058
     Dates: start: 202101
  2. HUMIRA [Suspect]
     Active Substance: ADALIMUMAB
     Dosage: CITRATE FREE
     Route: 058
  3. SPIRONOLACTONE [Concomitant]
     Active Substance: SPIRONOLACTONE
     Indication: Product used for unknown indication
  4. LUNESTA [Concomitant]
     Active Substance: ESZOPICLONE
     Indication: Product used for unknown indication
  5. ATORVASTATIN [Concomitant]
     Active Substance: ATORVASTATIN
     Indication: Product used for unknown indication
  6. LIPITOR [Concomitant]
     Active Substance: ATORVASTATIN CALCIUM
     Indication: Product used for unknown indication
  7. METHOTREXATE [Concomitant]
     Active Substance: METHOTREXATE
     Indication: Product used for unknown indication
  8. MODERNA COVID-19 VACCINE [Concomitant]
     Active Substance: ELASOMERAN
     Indication: COVID-19 immunisation
     Dosage: 1ST DOSE  ?1 IN ONCE
     Route: 030
     Dates: start: 20210204, end: 20210204
  9. MODERNA COVID-19 VACCINE [Concomitant]
     Active Substance: ELASOMERAN
     Indication: COVID-19 immunisation
     Dosage: 3RD DOSE ?1 IN ONCE
     Route: 030
     Dates: start: 20211205, end: 20211205
  10. MODERNA COVID-19 VACCINE [Concomitant]
     Active Substance: ELASOMERAN
     Indication: COVID-19 immunisation
     Dosage: 2ND DOSE ?1 IN ONCE
     Route: 030
     Dates: start: 20210304, end: 20210304

REACTIONS (10)
  - Cataract [Not Recovered/Not Resolved]
  - Glaucoma [Recovered/Resolved]
  - Visual impairment [Not Recovered/Not Resolved]
  - Uveitis [Recovered/Resolved]
  - Cataract [Recovered/Resolved]
  - Eye inflammation [Recovered/Resolved]
  - Eye inflammation [Not Recovered/Not Resolved]
  - Pruritus [Unknown]
  - Glaucoma [Not Recovered/Not Resolved]
  - Visual impairment [Recovered/Resolved]

NARRATIVE: CASE EVENT DATE: 20200101
